FAERS Safety Report 11273044 (Version 3)
Quarter: 2015Q4

REPORT INFORMATION
  Report Type: Report from Study
  Country: PR (occurrence: PR)
  Receive Date: 20150715
  Receipt Date: 20151006
  Transmission Date: 20160304
  Serious: Yes (Other)
  Sender: FDA-Public Use
  Company Number: PR-ABBVIE-15P-131-1426133-00

PATIENT
  Age: 19 Year
  Sex: Female

DRUGS (2)
  1. KALETRA [Suspect]
     Active Substance: LOPINAVIR\RITONAVIR
     Indication: HIV INFECTION
     Dosage: ONE COURSE
     Route: 048
     Dates: start: 20140428
  2. TRUVADA [Suspect]
     Active Substance: EMTRICITABINE\TENOFOVIR DISOPROXIL FUMARATE
     Indication: HIV INFECTION
     Dosage: ONE COURSE
     Route: 048
     Dates: start: 20140428

REACTIONS (2)
  - Exposure during pregnancy [Unknown]
  - Stillbirth [Unknown]

NARRATIVE: CASE EVENT DATE: 20150511
